FAERS Safety Report 25698467 (Version 1)
Quarter: 2025Q3

REPORT INFORMATION
  Report Type: Spontaneous
  Country: JP (occurrence: JP)
  Receive Date: 20250819
  Receipt Date: 20250819
  Transmission Date: 20251021
  Serious: Yes (Death, Hospitalization, Other)
  Sender: Onesource Specialty Pharma
  Company Number: JP-STRIDES ARCOLAB LIMITED-2025OS000456

PATIENT
  Age: 44 Year
  Sex: Female

DRUGS (7)
  1. MYCOPHENOLATE MOFETIL [Suspect]
     Active Substance: MYCOPHENOLATE MOFETIL
     Indication: Prophylaxis against graft versus host disease
     Route: 065
  2. CYCLOPHOSPHAMIDE [Suspect]
     Active Substance: CYCLOPHOSPHAMIDE
     Indication: Prophylaxis against graft versus host disease
     Route: 065
  3. TACROLIMUS [Suspect]
     Active Substance: TACROLIMUS
     Indication: Prophylaxis against graft versus host disease
     Route: 065
  4. GEMTUZUMAB OZOGAMICIN [Concomitant]
     Active Substance: GEMTUZUMAB OZOGAMICIN
     Indication: Leukaemia recurrent
     Route: 065
  5. GEMTUZUMAB OZOGAMICIN [Concomitant]
     Active Substance: GEMTUZUMAB OZOGAMICIN
     Indication: Acute myeloid leukaemia
  6. CYTARABINE [Concomitant]
     Active Substance: CYTARABINE
     Indication: Leukaemia recurrent
     Route: 065
  7. CYTARABINE [Concomitant]
     Active Substance: CYTARABINE
     Indication: Acute myeloid leukaemia

REACTIONS (1)
  - Drug ineffective for unapproved indication [Fatal]
